FAERS Safety Report 13142917 (Version 2)
Quarter: 2017Q1

REPORT INFORMATION
  Report Type: Spontaneous
  Country: US (occurrence: US)
  Receive Date: 20170124
  Receipt Date: 20170328
  Transmission Date: 20170428
  Serious: Yes (Other)
  Sender: FDA-Public Use
  Company Number: US-PFIZER INC-2015401674

PATIENT
  Age: 76 Year
  Sex: Male

DRUGS (17)
  1. IBRANCE [Suspect]
     Active Substance: PALBOCICLIB
     Dosage: 100 MG, UNK
  2. FLAXSEED [Concomitant]
     Active Substance: FLAX SEED
     Dosage: UNK
     Route: 048
  3. CITRACAL + D [Concomitant]
     Active Substance: CALCIUM CITRATE\VITAMIN D
     Dosage: UNK, [CALCIUM: 250 MG, D: 250 UNIT]
  4. IBRANCE [Suspect]
     Active Substance: PALBOCICLIB
     Dosage: 75 MG, CYCLIC [TAKE 1 CAPSULE PO QD X 21 DAYS THAN 7 DAYS OFF]
     Route: 048
  5. IBRANCE [Suspect]
     Active Substance: PALBOCICLIB
     Dosage: 125 MG, CYCLIC [D1-D21]
     Route: 048
     Dates: start: 20160920
  6. LUPRON [Concomitant]
     Active Substance: LEUPROLIDE ACETATE
     Indication: BREAST CANCER MALE
     Dosage: 22.5 MG, UNK [Q 3 MONTHS X4]
     Dates: start: 20160615
  7. IBRANCE [Suspect]
     Active Substance: PALBOCICLIB
     Dosage: 125 MG, CYCLIC [D1-D21 Q28 DAYS X 6 MONTHS (METASTATIC)]
     Route: 048
     Dates: start: 20151123, end: 20160428
  8. FASLODEX [Concomitant]
     Active Substance: FULVESTRANT
     Indication: BREAST CANCER MALE
     Dosage: 500 MG, CYCLIC [D1 + D15 CYCLE 1 FB D1 Q28 DAYS X 6 MONTHS (METASTATIC)]
     Route: 030
     Dates: start: 20160920
  9. VITAMIN D3 [Concomitant]
     Active Substance: CHOLECALCIFEROL
     Dosage: 2000 IU, UNK
  10. IBRANCE [Suspect]
     Active Substance: PALBOCICLIB
     Indication: BREAST CANCER MALE
     Dosage: 125 MG, UNK
     Dates: start: 20151120
  11. FEMARA [Concomitant]
     Active Substance: LETROZOLE
     Indication: BREAST CANCER MALE
     Dosage: 2.5 MG, DAILY [QD]
     Dates: start: 20151123, end: 20160428
  12. CRESTOR [Concomitant]
     Active Substance: ROSUVASTATIN CALCIUM
     Dosage: 5 MG, UNK
  13. LISINOPRIL. [Concomitant]
     Active Substance: LISINOPRIL
     Dosage: 5 MG, UNK
  14. NEURONTIN [Concomitant]
     Active Substance: GABAPENTIN
     Dosage: 300 MG, UNK
  15. INFLUENZA [Concomitant]
     Active Substance: INFLUENZA VIRUS VACCINE
     Indication: IMMUNISATION
     Dosage: UNK
     Dates: start: 20161014, end: 20161014
  16. XGEVA [Concomitant]
     Active Substance: DENOSUMAB
     Indication: BREAST CANCER MALE
     Dosage: 120 MG, CYCLIC [120 MG Q 28D X12 ]
     Dates: start: 20150701, end: 20160518
  17. GABAPENTIN. [Concomitant]
     Active Substance: GABAPENTIN
     Dosage: 300 MG, UNK

REACTIONS (5)
  - Leukopenia [Unknown]
  - Neutropenia [Unknown]
  - Product use issue [Unknown]
  - Stomatitis [Unknown]
  - Weight increased [Unknown]
